FAERS Safety Report 9230749 (Version 1)
Quarter: 2013Q2

REPORT INFORMATION
  Report Type: Spontaneous
  Country: GB (occurrence: None)
  Receive Date: 20130411
  Receipt Date: 20130411
  Transmission Date: 20140414
  Serious: Yes (Hospitalization)
  Sender: FDA-Public Use
  Company Number: AUR-APL-2013-02832

PATIENT
  Age: 64 Year
  Sex: Female

DRUGS (1)
  1. SIMVASTATIN (SIMVASTATIN) [Suspect]
     Indication: PRODUCT USED FOR UNKNOWN INDICATION
     Dosage: (40 MG 1 IN 1 D)
     Route: 048

REACTIONS (6)
  - Pancreatitis acute [None]
  - Glomerular filtration rate decreased [None]
  - Aspartate aminotransferase increased [None]
  - Blood alkaline phosphatase increased [None]
  - Blood lactate dehydrogenase increased [None]
  - Blood bilirubin increased [None]
